FAERS Safety Report 5913560-6 (Version None)
Quarter: 2008Q4

REPORT INFORMATION
  Report Type: 
  Country: None (occurrence: None)
  Receive Date: 20081007
  Receipt Date: 20080929
  Transmission Date: 20090506
  Serious: Yes (Death, Life-Threatening, Disabling)
  Sender: FDA-Public Use
  Company Number: 2007SP011511

PATIENT
  Age: 65 Year
  Sex: Female
  Weight: 54 kg

DRUGS (15)
  1. TEMODAL [Suspect]
     Indication: GLIOBLASTOMA MULTIFORME
     Dosage: 75 MG/M2;QD;PO
     Route: 048
     Dates: start: 20061222, end: 20070129
  2. BETAMETHASONE [Suspect]
     Indication: DRUG USE FOR UNKNOWN INDICATION
     Dosage: PO
     Route: 048
     Dates: start: 20061222, end: 20070509
  3. DEPAKENE [Suspect]
     Indication: DRUG USE FOR UNKNOWN INDICATION
     Dosage: PO
     Route: 048
     Dates: start: 20061222, end: 20070205
  4. TAGAMET [Suspect]
     Indication: DRUG USE FOR UNKNOWN INDICATION
     Dosage: PO
     Route: 048
     Dates: start: 20061222, end: 20070205
  5. NASEA-OD [Concomitant]
  6. DOGMATYL [Concomitant]
  7. MAALOX [Concomitant]
  8. MAGLAX [Concomitant]
  9. PURSENNID [Concomitant]
  10. CRAVIT [Concomitant]
  11. ALEVIATIN [Concomitant]
  12. ZANTAC [Concomitant]
  13. LANSOPRAZOLE [Concomitant]
  14. LEVOTHYROXINE SODIUM [Concomitant]
  15. RABEPRAZOLE SODIUM [Concomitant]

REACTIONS (13)
  - ANAEMIA [None]
  - BLOOD ALBUMIN DECREASED [None]
  - BLOOD ALKALINE PHOSPHATASE INCREASED [None]
  - CARDIAC FAILURE [None]
  - DISEASE PROGRESSION [None]
  - GASTROINTESTINAL HAEMORRHAGE [None]
  - HYPERKALAEMIA [None]
  - LYMPHOCYTE COUNT DECREASED [None]
  - NEUTROPHIL COUNT DECREASED [None]
  - PLATELET COUNT DECREASED [None]
  - PNEUMOCYSTIS JIROVECI PNEUMONIA [None]
  - PROTEIN TOTAL DECREASED [None]
  - WHITE BLOOD CELL COUNT DECREASED [None]
